FAERS Safety Report 5737731-7 (Version None)
Quarter: 2008Q2

REPORT INFORMATION
  Report Type: 
  Country: None (occurrence: None)
  Receive Date: 20080514
  Receipt Date: 20080508
  Transmission Date: 20081010
  Serious: Yes (Other)
  Sender: FDA-Public Use
  Company Number: B0418214A

PATIENT
  Sex: Male

DRUGS (9)
  1. SEROXAT [Suspect]
     Route: 065
     Dates: start: 20000101
  2. PAROXETINE HCL [Suspect]
     Route: 065
  3. ZOPICLONE [Concomitant]
  4. BISOPROLOL FUMARATE [Concomitant]
  5. WARFARIN SODIUM [Concomitant]
  6. CANDESARTAN [Concomitant]
  7. ATORVASTATIN [Concomitant]
  8. VIAGRA [Concomitant]
  9. SERC [Concomitant]

REACTIONS (7)
  - ADVERSE EVENT [None]
  - DEPRESSION [None]
  - DRUG DEPENDENCE [None]
  - NAUSEA [None]
  - PANIC ATTACK [None]
  - VERTIGO [None]
  - WITHDRAWAL SYNDROME [None]
